FAERS Safety Report 4674372-7 (Version None)
Quarter: 2005Q2

REPORT INFORMATION
  Report Type: 
  Country: None (occurrence: None)
  Receive Date: 20050524
  Receipt Date: 20050509
  Transmission Date: 20051028
  Serious: Yes (Hospitalization, Other)
  Sender: FDA-Public Use
  Company Number: USA050597706

PATIENT
  Age: 50 Year
  Sex: Female

DRUGS (9)
  1. ZYPREXA [Suspect]
     Indication: SCHIZOAFFECTIVE DISORDER
     Dosage: 20 MG DAY
     Dates: start: 19990701, end: 20041113
  2. KLONOPIN [Concomitant]
  3. ATIVAN [Concomitant]
  4. NEURONTIN(GABAPENTIN PFIZER) [Concomitant]
  5. ACIPHEX [Concomitant]
  6. RISPERDAL [Concomitant]
  7. TRAZADONE (TRAZDONE) [Concomitant]
  8. ADVAIR DISKUS 100/50 [Concomitant]
  9. ALBUTEROL [Concomitant]

REACTIONS (10)
  - ALANINE AMINOTRANSFERASE INCREASED [None]
  - ANGIOGRAM ABNORMAL [None]
  - ASPARTATE AMINOTRANSFERASE INCREASED [None]
  - DRUG INEFFECTIVE [None]
  - ELECTROCARDIOGRAM ABNORMAL [None]
  - NEUROLEPTIC MALIGNANT SYNDROME [None]
  - PNEUMONIA [None]
  - RHABDOMYOLYSIS [None]
  - SEDATION [None]
  - UNDERDOSE [None]
